FAERS Safety Report 6822757-2 (Version None)
Quarter: 2010Q3

REPORT INFORMATION
  Report Type: 
  Country: None (occurrence: None)
  Receive Date: 20100708
  Receipt Date: 20100628
  Transmission Date: 20110219
  Serious: Yes (Death, Life-Threatening)
  Sender: FDA-Public Use
  Company Number: ZA-JNJFOC-20100700150

PATIENT
  Sex: Male
  Weight: 77 kg

DRUGS (4)
  1. REVELLEX [Suspect]
     Indication: ANKYLOSING SPONDYLITIS
     Route: 042
  2. WARFARIN SODIUM [Concomitant]
     Indication: CORONARY ARTERY DISEASE
     Route: 048
  3. DISPRIN [Concomitant]
     Indication: CORONARY ARTERY DISEASE
     Route: 048
  4. SIMVASTATIN [Concomitant]
     Route: 048

REACTIONS (6)
  - ARRHYTHMIA [None]
  - DIARRHOEA [None]
  - MYOCARDIAL INFARCTION [None]
  - NAUSEA [None]
  - SUDDEN DEATH [None]
  - WEIGHT DECREASED [None]
